FAERS Safety Report 8261054-8 (Version None)
Quarter: 2012Q2

REPORT INFORMATION
  Report Type: 
  Country: None (occurrence: None)
  Receive Date: 20120402
  Receipt Date: 20070515
  Transmission Date: 20120825
  Serious: Yes (Hospitalization)
  Sender: FDA-Public Use
  Company Number: GGEL20110200024

PATIENT
  Age: 67 Year
  Sex: Female

DRUGS (12)
  1. NAPROXEN [Concomitant]
  2. GABAPENTIN [Suspect]
     Indication: ANALGESIC THERAPY
     Dosage: 4800 - 7200 MG / DAY, 1600 - 2400 MG / DAY
     Dates: end: 20050401
  3. GABAPENTIN [Suspect]
     Indication: POLYNEUROPATHY
     Dosage: 4800 - 7200 MG / DAY, 1600 - 2400 MG / DAY
     Dates: end: 20050401
  4. GABAPENTIN [Suspect]
     Indication: ANALGESIC THERAPY
     Dosage: 4800 - 7200 MG / DAY, 1600 - 2400 MG / DAY
     Dates: start: 20050716
  5. GABAPENTIN [Suspect]
     Indication: POLYNEUROPATHY
     Dosage: 4800 - 7200 MG / DAY, 1600 - 2400 MG / DAY
     Dates: start: 20050716
  6. AMITRIPTYLINE (AMITRIPTYLINE) (AMITRIPTYLINE) [Concomitant]
  7. ACEPROMETAZINE/MEPROBAMATE (ACEPROMETAZINE, MEPROBAMATE) (ACEPROMETAZI [Concomitant]
  8. NICOTINE CHEWING GUM (NICOTINE) (NICOTINE) [Concomitant]
  9. DIAZEPAM [Concomitant]
  10. OXCARBAZEPINE [Concomitant]
  11. DEXTROPROPOXYPHENE/ACETAMINOPHEN (DEXTROPROPOXYPHENE, ACETAMINOPHEN) ( [Concomitant]
  12. ALIMEMAZINE (ALIMEMAZINE) (ALIMEMAZINE) [Concomitant]

REACTIONS (8)
  - DRUG WITHDRAWAL SYNDROME [None]
  - PALLOR [None]
  - HYPERHIDROSIS [None]
  - DRUG TOLERANCE INCREASED [None]
  - TREMOR [None]
  - AGITATION [None]
  - EXOPHTHALMOS [None]
  - DRUG DEPENDENCE [None]
